FAERS Safety Report 8343652-6 (Version None)
Quarter: 2012Q2

REPORT INFORMATION
  Report Type: 
  Country: None (occurrence: None)
  Receive Date: 20120508
  Receipt Date: 20100726
  Transmission Date: 20120825
  Serious: No
  Sender: FDA-Public Use
  Company Number: US-TEVA-2010003931

PATIENT
  Age: 72 Year
  Sex: Female

DRUGS (2)
  1. TREANDA [Suspect]
     Indication: CHRONIC LYMPHOCYTIC LEUKAEMIA
     Route: 042
  2. BACTRIM [Suspect]
     Indication: INFECTION PROPHYLAXIS
     Route: 048

REACTIONS (3)
  - NAUSEA [None]
  - WEIGHT DECREASED [None]
  - ABDOMINAL DISTENSION [None]
